FAERS Safety Report 22049821 (Version 8)
Quarter: 2025Q3

REPORT INFORMATION
  Report Type: Spontaneous
  Country: US (occurrence: US)
  Receive Date: 20230301
  Receipt Date: 20250805
  Transmission Date: 20251021
  Serious: No
  Sender: PFIZER
  Company Number: US-PFIZER INC-PV202300023208

PATIENT
  Age: 74 Year
  Sex: Female
  Weight: 53.61 kg

DRUGS (2)
  1. LORBRENA [Suspect]
     Active Substance: LORLATINIB
     Indication: Lung carcinoma cell type unspecified stage IV
     Dosage: 100 MG, DAILY (TAKE WHOLE WITH WATER, WITH OR WITHOUT FOOD AT SAME TIME EACH DAY, REFILLS: 6)
     Route: 048
     Dates: start: 20230203
  2. LORBRENA [Suspect]
     Active Substance: LORLATINIB
     Indication: Lung neoplasm malignant

REACTIONS (2)
  - Hypotonia [Unknown]
  - Brain fog [Unknown]
